FAERS Safety Report 6607085-2 (Version None)
Quarter: 2010Q1

REPORT INFORMATION
  Report Type: 
  Country: None (occurrence: None)
  Receive Date: 20100219
  Receipt Date: 20100209
  Transmission Date: 20100710
  Serious: No
  Sender: FDA-Public Use
  Company Number: 2010000778

PATIENT

DRUGS (2)
  1. FENTORA [Suspect]
     Indication: PAIN
     Dosage: 800 MCG, BU
     Route: 002
  2. PERCOCET (PARACETAMOL, OXYCODONE HYDROCHLORIDE, OCYCODONE TTEREPHTHALA [Concomitant]

REACTIONS (1)
  - DRUG PRESCRIBING ERROR [None]
